FAERS Safety Report 25822991 (Version 3)
Quarter: 2025Q4

REPORT INFORMATION
  Report Type: Spontaneous
  Country: EU (occurrence: EU)
  Receive Date: 20250919
  Receipt Date: 20251016
  Transmission Date: 20260117
  Serious: Yes (Other)
  Sender: SANOFI AVENTIS
  Company Number: EU-EMA-DD-20250904-7482647-125733

PATIENT
  Age: 45 Year
  Sex: Female

DRUGS (6)
  1. DOCETAXEL [Suspect]
     Active Substance: DOCETAXEL
     Indication: HER2 positive breast cancer
     Dosage: UNK UNK, QCY
     Dates: start: 2017, end: 202009
  2. DOCETAXEL [Suspect]
     Active Substance: DOCETAXEL
     Indication: Metastases to liver
  3. TRASTUZUMAB [Suspect]
     Active Substance: TRASTUZUMAB
     Indication: Metastases to liver
     Dosage: UNK UNK, QCY
     Route: 058
     Dates: start: 2017
  4. TRASTUZUMAB [Suspect]
     Active Substance: TRASTUZUMAB
     Indication: HER2 negative breast cancer
     Dosage: UNK, (MAINTENANCE THERAPY)
     Dates: end: 202009
  5. PERTUZUMAB [Suspect]
     Active Substance: PERTUZUMAB
     Indication: HER2 negative breast cancer
     Dosage: UNK UNK, QCY
     Dates: start: 2017, end: 202009
  6. PERTUZUMAB [Suspect]
     Active Substance: PERTUZUMAB
     Indication: Metastases to liver
     Dosage: UNK, (MAINTENANCE THERAPY)
     Dates: end: 202009

REACTIONS (3)
  - Sarcoid-like reaction [Unknown]
  - Sarcoidosis [Unknown]
  - Granuloma [Unknown]

NARRATIVE: CASE EVENT DATE: 20200901
